FAERS Safety Report 15111038 (Version 3)
Quarter: 2018Q3

REPORT INFORMATION
  Report Type: Spontaneous
  Country: JP (occurrence: JP)
  Receive Date: 20180705
  Receipt Date: 20180918
  Transmission Date: 20181010
  Serious: Yes (Disabling, Other)
  Sender: FDA-Public Use
  Company Number: JP-JNJFOC-20180701573

PATIENT
  Age: 78 Year
  Sex: Male

DRUGS (2)
  1. REMINYL [Suspect]
     Active Substance: GALANTAMINE
     Indication: DEMENTIA
     Route: 048
  2. VITAMIN B2 [Concomitant]
     Active Substance: RIBOFLAVIN
     Route: 065

REACTIONS (3)
  - Delirium [Unknown]
  - Fall [Unknown]
  - Spinal column injury [Recovered/Resolved with Sequelae]
